FAERS Safety Report 20664323 (Version 1)
Quarter: 2022Q2

REPORT INFORMATION
  Report Type: Spontaneous
  Country: US (occurrence: US)
  Receive Date: 20220401
  Receipt Date: 20220401
  Transmission Date: 20220721
  Serious: No
  Sender: FDA-Public Use
  Company Number: US-BAUSCH-BL-2022-008004

PATIENT
  Age: 18 Year
  Sex: Male
  Weight: 77.180 kg

DRUGS (1)
  1. HYDROCORTISONE [Suspect]
     Active Substance: HYDROCORTISONE
     Indication: Product used for unknown indication
     Route: 065

REACTIONS (4)
  - Burning sensation [Not Recovered/Not Resolved]
  - Wound [Not Recovered/Not Resolved]
  - Scab [Not Recovered/Not Resolved]
  - Condition aggravated [Not Recovered/Not Resolved]
